FAERS Safety Report 15844811 (Version 1)
Quarter: 2019Q1

REPORT INFORMATION
  Report Type: Spontaneous
  Country: GB (occurrence: GB)
  Receive Date: 20190118
  Receipt Date: 20190118
  Transmission Date: 20190417
  Serious: Yes (Hospitalization, Other)
  Sender: FDA-Public Use
  Company Number: GB-MYLANLABS-2018M1094991

PATIENT
  Sex: Male

DRUGS (1)
  1. CLOZARIL [Suspect]
     Active Substance: CLOZAPINE
     Indication: SCHIZOPHRENIA
     Dosage: UNK
     Route: 048
     Dates: start: 20140124, end: 20181203

REACTIONS (5)
  - Malaise [Recovered/Resolved]
  - Heart rate increased [Not Recovered/Not Resolved]
  - Syncope [Recovering/Resolving]
  - Urinary tract infection [Recovered/Resolved]
  - Hypotension [Recovering/Resolving]
